FAERS Safety Report 7505224-2 (Version None)
Quarter: 2011Q2

REPORT INFORMATION
  Report Type: 
  Country: None (occurrence: None)
  Receive Date: 20110526
  Receipt Date: 20110523
  Transmission Date: 20111010
  Serious: No
  Sender: FDA-Public Use
  Company Number: US-PFIZER INC-2011076422

PATIENT
  Sex: Female
  Weight: 54.422 kg

DRUGS (5)
  1. NEURONTIN [Suspect]
     Indication: CONVULSION
     Dosage: 600 MG, 5X/DAY
     Dates: start: 20000101
  2. BENADRYL [Suspect]
     Indication: HYPERSENSITIVITY
     Dosage: UNK
     Route: 048
  3. SOLU-MEDROL [Suspect]
     Indication: ADDISON'S DISEASE
     Dosage: 125 MG, QD UD
     Route: 030
     Dates: start: 20101001
  4. SOLU-MEDROL [Suspect]
     Indication: ANAPHYLACTIC REACTION
  5. ADVIL LIQUI-GELS [Concomitant]
     Indication: MUSCULOSKELETAL PAIN
     Dosage: 325 MG, EVERY 8 HRS

REACTIONS (5)
  - INJECTION SITE RASH [None]
  - DRUG INEFFECTIVE [None]
  - INJECTION SITE SWELLING [None]
  - INJECTION SITE PAIN [None]
  - NAUSEA [None]
